FAERS Safety Report 5800820-2 (Version None)
Quarter: 2008Q3

REPORT INFORMATION
  Report Type: 
  Country: None (occurrence: None)
  Receive Date: 20080703
  Receipt Date: 20080626
  Transmission Date: 20090109
  Serious: Yes (Hospitalization, Disabling, Other)
  Sender: FDA-Public Use
  Company Number: US-MERCK-0802USA04812

PATIENT
  Age: 45 Year
  Sex: Female
  Weight: 64 kg

DRUGS (1)
  1. FOSAMAX [Suspect]
     Route: 048

REACTIONS (10)
  - ABDOMINAL PAIN [None]
  - BACK PAIN [None]
  - BREAST DISCHARGE [None]
  - CELLULITIS [None]
  - FALL [None]
  - HUMERUS FRACTURE [None]
  - HYPOAESTHESIA [None]
  - MYOFASCIAL PAIN SYNDROME [None]
  - ORAL INFECTION [None]
  - OSTEONECROSIS [None]
